FAERS Safety Report 4449480-6 (Version None)
Quarter: 2004Q3

REPORT INFORMATION
  Report Type: 
  Country: None (occurrence: None)
  Receive Date: 20040913
  Receipt Date: 20040826
  Transmission Date: 20050211
  Serious: Yes (Hospitalization)
  Sender: FDA-Public Use
  Company Number: DSA_24952_2004

PATIENT
  Age: 56 Year
  Sex: Male

DRUGS (2)
  1. TAVOR [Suspect]
     Dates: start: 20040823, end: 20040823
  2. TAVOR [Suspect]
     Dates: start: 20040823, end: 20040823

REACTIONS (3)
  - INTENTIONAL OVERDOSE [None]
  - MIOSIS [None]
  - SOMNOLENCE [None]
